FAERS Safety Report 10755990 (Version 1)
Quarter: 2015Q1

REPORT INFORMATION
  Report Type: Spontaneous
  Country: GB (occurrence: GB)
  Receive Date: 20150202
  Receipt Date: 20150202
  Transmission Date: 20150721
  Serious: Yes (Other)
  Sender: FDA-Public Use
  Company Number: GB-009507513-1501GBR011404

PATIENT
  Age: 22 Year
  Sex: Female
  Weight: 161 kg

DRUGS (1)
  1. NEXPLANON [Suspect]
     Active Substance: ETONOGESTREL
     Indication: CONTRACEPTION
     Dosage: 68 MG, UNK
     Route: 059
     Dates: start: 20141113, end: 20141224

REACTIONS (5)
  - Implant site swelling [Recovered/Resolved]
  - Implant site pain [Recovered/Resolved]
  - Foreign body reaction [Recovered/Resolved]
  - Implant site erythema [Recovered/Resolved]
  - Device expulsion [Recovered/Resolved with Sequelae]

NARRATIVE: CASE EVENT DATE: 20141120
